FAERS Safety Report 4563779-4 (Version None)
Quarter: 2005Q1

REPORT INFORMATION
  Report Type: 
  Country: None (occurrence: None)
  Receive Date: 20050128
  Receipt Date: 20040412
  Transmission Date: 20050727
  Serious: No
  Sender: FDA-Public Use
  Company Number: US-GLAXOSMITHKLINE-A0506844A

PATIENT
  Age: 35 Year
  Sex: Male

DRUGS (3)
  1. MEPRON [Suspect]
     Indication: LYME DISEASE
     Dosage: 1TSP TWICE PER DAY
     Route: 048
     Dates: start: 20040301
  2. BIAXIN [Suspect]
     Indication: LYME DISEASE
     Dosage: 500MG TWICE PER DAY
     Route: 048
     Dates: start: 20040301
  3. HYDROCHLOROTHIAZIDE [Concomitant]

REACTIONS (5)
  - ABDOMINAL PAIN UPPER [None]
  - HEADACHE [None]
  - NAUSEA [None]
  - STOMACH DISCOMFORT [None]
  - VOMITING [None]
